FAERS Safety Report 18590708 (Version 1)
Quarter: 2020Q4

REPORT INFORMATION
  Report Type: Spontaneous
  Country: US (occurrence: US)
  Receive Date: 20201208
  Receipt Date: 20201208
  Transmission Date: 20210114
  Serious: Yes (Hospitalization)
  Sender: FDA-Public Use
  Company Number: None

PATIENT
  Age: 83 Year
  Sex: Female
  Weight: 81.9 kg

DRUGS (2)
  1. CEFTRIAXONE. [Suspect]
     Active Substance: CEFTRIAXONE
     Indication: ANIMAL BITE
     Route: 042
     Dates: start: 20201117, end: 20201119
  2. METRONIDAZOLE. [Concomitant]
     Active Substance: METRONIDAZOLE
     Dates: start: 20201117, end: 20201123

REACTIONS (6)
  - Drug hypersensitivity [None]
  - Rash [None]
  - Blister [None]
  - Stevens-Johnson syndrome [None]
  - Skin weeping [None]
  - Localised oedema [None]

NARRATIVE: CASE EVENT DATE: 20201118
